FAERS Safety Report 9725015 (Version 1)
Quarter: 2013Q4

REPORT INFORMATION
  Report Type: Spontaneous
  Country: DE (occurrence: DE)
  Receive Date: 20131203
  Receipt Date: 20131203
  Transmission Date: 20140711
  Serious: Yes (Other)
  Sender: FDA-Public Use
  Company Number: DE-JNJFOC-20131118089

PATIENT
  Sex: Female

DRUGS (2)
  1. REGAINE UNSPECIFIED [Suspect]
     Route: 061
  2. REGAINE UNSPECIFIED [Suspect]
     Indication: PRODUCT USED FOR UNKNOWN INDICATION
     Route: 061

REACTIONS (2)
  - Angioedema [Recovered/Resolved]
  - Dermatitis contact [Recovered/Resolved]
